FAERS Safety Report 10170841 (Version 2)
Quarter: 2017Q4

REPORT INFORMATION
  Report Type: Spontaneous
  Country: MX (occurrence: MX)
  Receive Date: 20140514
  Receipt Date: 20171113
  Transmission Date: 20180320
  Serious: Yes (Hospitalization)
  Sender: FDA-Public Use
  Company Number: MX-ROCHE-1400012

PATIENT
  Sex: Female
  Weight: 51 kg

DRUGS (2)
  1. ROACTEMRA [Suspect]
     Active Substance: TOCILIZUMAB
     Indication: STILL^S DISEASE
     Route: 042
     Dates: start: 201403, end: 201405
  2. PREDNISONE. [Concomitant]
     Active Substance: PREDNISONE
     Indication: STILL^S DISEASE
     Dosage: CURRENTLY ONGOING
     Route: 048
     Dates: start: 201111

REACTIONS (9)
  - Paraesthesia [Unknown]
  - Hypotension [Unknown]
  - Vomiting [Unknown]
  - Dizziness [Unknown]
  - Pyrexia [Unknown]
  - Nausea [Unknown]
  - Tachycardia [Unknown]
  - Erythema [Unknown]
  - Dyspnoea [Unknown]
